FAERS Safety Report 24721723 (Version 1)
Quarter: 2024Q4

REPORT INFORMATION
  Report Type: Spontaneous
  Country: US (occurrence: None)
  Receive Date: 20241210
  Receipt Date: 20241210
  Transmission Date: 20250115
  Serious: Yes (Hospitalization)
  Sender: Public
  Company Number: None

PATIENT
  Age: 62 Year
  Sex: Male
  Weight: 104 kg

DRUGS (1)
  1. HYDROCHLOROTHIAZIDE [Suspect]
     Active Substance: HYDROCHLOROTHIAZIDE
     Indication: Hypertension

REACTIONS (6)
  - Abdominal pain [None]
  - Decreased appetite [None]
  - Dyspepsia [None]
  - Vomiting [None]
  - Nausea [None]
  - Pancreatitis acute [None]

NARRATIVE: CASE EVENT DATE: 20200803
